FAERS Safety Report 8819740 (Version 1)
Quarter: 2012Q4

REPORT INFORMATION
  Report Type: 
  Country: US (occurrence: US)
  Receive Date: 20121001
  Receipt Date: 20121001
  Transmission Date: 20130627
  Serious: Yes (Other)
  Sender: FDA-Public Use
  Company Number: US-ROCHE-1130228

PATIENT
  Age: 58 Year
  Sex: Female

DRUGS (4)
  1. HERCEPTIN [Suspect]
     Indication: BREAST CANCER
     Route: 065
     Dates: start: 19981125
  2. NAVELBINE [Suspect]
     Indication: PRODUCT USED FOR UNKNOWN INDICATION
     Route: 065
     Dates: start: 19981203
  3. NAVELBINE [Suspect]
     Route: 065
     Dates: start: 19981209
  4. TAXOL [Concomitant]
     Route: 065

REACTIONS (14)
  - Dehydration [Unknown]
  - Neutropenia [Unknown]
  - Atrial fibrillation [Recovered/Resolved]
  - Metastases to lung [Unknown]
  - Asthenia [Unknown]
  - Cough [Recovering/Resolving]
  - Chest pain [Unknown]
  - Nausea [Recovered/Resolved]
  - Vomiting [Recovered/Resolved]
  - Neuropathy peripheral [Unknown]
  - Constipation [Unknown]
  - Fatigue [Unknown]
  - Chest discomfort [Unknown]
  - Muscular weakness [Unknown]
